FAERS Safety Report 13179406 (Version 1)
Quarter: 2017Q1

REPORT INFORMATION
  Report Type: Spontaneous
  Country: DE (occurrence: DE)
  Receive Date: 20170202
  Receipt Date: 20170202
  Transmission Date: 20170428
  Serious: Yes (Hospitalization)
  Sender: FDA-Public Use
  Company Number: DE-SA-2016SA202105

PATIENT
  Sex: Female

DRUGS (1)
  1. AUBAGIO [Suspect]
     Active Substance: TERIFLUNOMIDE
     Indication: MULTIPLE SCLEROSIS
     Route: 048
     Dates: start: 2014, end: 201609

REACTIONS (7)
  - Organising pneumonia [Recovering/Resolving]
  - Chills [Recovering/Resolving]
  - Atypical pneumonia [Not Recovered/Not Resolved]
  - Chest pain [Recovering/Resolving]
  - Pyrexia [Recovering/Resolving]
  - Organising pneumonia [Recovering/Resolving]
  - Night sweats [Recovering/Resolving]

NARRATIVE: CASE EVENT DATE: 2016
